FAERS Safety Report 8574277-5 (Version None)
Quarter: 2012Q3

REPORT INFORMATION
  Report Type: 
  Country: None (occurrence: None)
  Receive Date: 20120806
  Receipt Date: 20120730
  Transmission Date: 20120928
  Serious: Yes (Hospitalization, Other)
  Sender: FDA-Public Use
  Company Number: US-ABBOTT-12P-163-0962077-00

PATIENT
  Sex: Female

DRUGS (6)
  1. HUMIRA [Suspect]
     Indication: CROHN'S DISEASE
     Dosage: 1 IN 2 WEEKS, TWO WEEKS AFTER 80 MG DOSE
     Dates: start: 20100101, end: 20101101
  2. HUMIRA [Suspect]
     Dosage: 1 IN 1 DAY, TWO WEEKS AFTER 160 MG DOSE
     Dates: start: 20100101, end: 20100101
  3. IRON [Concomitant]
     Indication: PRODUCT USED FOR UNKNOWN INDICATION
  4. HUMIRA [Suspect]
     Dosage: 1 IN 1 DAY, ONE DOSE
     Dates: start: 20100801, end: 20100801
  5. VITAMIN B-12 [Concomitant]
     Indication: PRODUCT USED FOR UNKNOWN INDICATION
  6. HUMIRA [Suspect]
     Dates: start: 20120401

REACTIONS (6)
  - ABDOMINAL ADHESIONS [None]
  - DRUG INEFFECTIVE [None]
  - SMALL INTESTINAL HAEMORRHAGE [None]
  - HAEMATOCHEZIA [None]
  - ULCER [None]
  - HAEMOGLOBIN DECREASED [None]
